FAERS Safety Report 8027958-6 (Version None)
Quarter: 2012Q1

REPORT INFORMATION
  Report Type: 
  Country: None (occurrence: None)
  Receive Date: 20120106
  Receipt Date: 20111229
  Transmission Date: 20120608
  Serious: Yes (Other)
  Sender: FDA-Public Use
  Company Number: US-BAYER-2012-000111

PATIENT
  Age: 24 Year
  Sex: Female
  Weight: 73 kg

DRUGS (2)
  1. YAZ [Suspect]
     Indication: ORAL CONTRACEPTION
     Dosage: UNK
     Route: 048
     Dates: start: 20070101, end: 20090101
  2. LEVOTHYROXINE SODIUM [Concomitant]

REACTIONS (9)
  - IRRITABLE BOWEL SYNDROME [None]
  - MENORRHAGIA [None]
  - MOOD ALTERED [None]
  - ASTHENIA [None]
  - NERVOUSNESS [None]
  - CHOLELITHIASIS [None]
  - CHOLECYSTITIS CHRONIC [None]
  - GALLBLADDER DISORDER [None]
  - FATIGUE [None]
